FAERS Safety Report 20457387 (Version 1)
Quarter: 2022Q1

REPORT INFORMATION
  Report Type: Spontaneous
  Country: US (occurrence: US)
  Receive Date: 20220210
  Receipt Date: 20220210
  Transmission Date: 20220423
  Serious: No
  Sender: FDA-Public Use
  Company Number: US-GILEAD-2022-0568030

PATIENT
  Age: 38 Year
  Sex: Male

DRUGS (9)
  1. VOSEVI [Suspect]
     Active Substance: SOFOSBUVIR\VELPATASVIR\VOXILAPREVIR
     Indication: Chronic hepatitis C
     Dosage: 1 DOSAGE FORM (400-100-100 MG TABLET); EXPECTED TO COMPLETE ON 28-DEC-2021
     Route: 048
     Dates: start: 20210929, end: 20211222
  2. EPCLUSA [Suspect]
     Active Substance: SOFOSBUVIR\VELPATASVIR
     Indication: Chronic hepatitis C
     Dosage: 1 DOSAGE FORM (400-100-100 MG)
     Route: 048
  3. PEPCID [Concomitant]
     Active Substance: FAMOTIDINE
     Dosage: UNK (STOP DATE 05-JUN-2022)
     Dates: start: 20210605
  4. CELLCEPT [Concomitant]
     Active Substance: MYCOPHENOLATE MOFETIL
     Dosage: UNK (STOP DATE 10-AUG-2022)
     Dates: start: 20210810
  5. FLINTSTONES [Concomitant]
     Dosage: UNK
     Dates: start: 20200826
  6. DEXAMETHASONE [Concomitant]
     Active Substance: DEXAMETHASONE
     Dosage: UNK (STOP DATE 30-JUL-2022)
     Dates: start: 20210730
  7. SODIUM BICARBONATE [Concomitant]
     Active Substance: SODIUM BICARBONATE
     Dosage: UNK
     Dates: start: 20211102, end: 20220131
  8. BACTRIM [Concomitant]
     Active Substance: SULFAMETHOXAZOLE\TRIMETHOPRIM
     Dosage: UNK
     Dates: start: 20210604, end: 20211230
  9. ENVARSUS XR [Concomitant]
     Active Substance: TACROLIMUS
     Dosage: UNK (STOP DATE 17-NOV-2022)
     Dates: start: 20211117

REACTIONS (1)
  - Product dose omission issue [Unknown]

NARRATIVE: CASE EVENT DATE: 20211205
